FAERS Safety Report 8501371-7 (Version None)
Quarter: 2012Q3

REPORT INFORMATION
  Report Type: 
  Country: None (occurrence: None)
  Receive Date: 20120710
  Receipt Date: 20120628
  Transmission Date: 20120928
  Serious: No
  Sender: FDA-Public Use
  Company Number: US-ASTRAZENECA-2012SE43710

PATIENT
  Sex: Female
  Weight: 83.9 kg

DRUGS (4)
  1. NEXIUM [Suspect]
     Indication: BACK PAIN
     Route: 048
     Dates: start: 20120516
  2. MIGRAINE MEDICATION [Concomitant]
  3. MULTI-VITAMINS [Concomitant]
  4. NEXIUM [Suspect]
     Route: 048

REACTIONS (4)
  - CONDITION AGGRAVATED [None]
  - GALLBLADDER PAIN [None]
  - GALLBLADDER DISORDER [None]
  - OFF LABEL USE [None]
